FAERS Safety Report 15889555 (Version 1)
Quarter: 2019Q1

REPORT INFORMATION
  Report Type: Spontaneous
  Country: CN (occurrence: CN)
  Receive Date: 20190130
  Receipt Date: 20190130
  Transmission Date: 20190417
  Serious: Yes (Life-Threatening, Hospitalization)
  Sender: FDA-Public Use
  Company Number: CN-PFIZER INC-2019038564

PATIENT
  Age: 33 Year
  Sex: Female
  Weight: 64 kg

DRUGS (5)
  1. HOMOHARRINGTONINE [Suspect]
     Active Substance: OMACETAXINE MEPESUCCINATE
     Indication: ACUTE MYELOID LEUKAEMIA
     Dosage: 2 MG, 1X/DAY
     Route: 041
     Dates: start: 20181122, end: 20181201
  2. CYTOSAR [Suspect]
     Active Substance: CYTARABINE
     Dosage: 0.02 G, 2X/DAY
     Route: 041
     Dates: start: 20181122, end: 20181201
  3. DACOGEN [Suspect]
     Active Substance: DECITABINE
     Indication: ACUTE MYELOID LEUKAEMIA
     Dosage: 35 MG, 1X/DAY
     Route: 041
     Dates: start: 20181122, end: 20181226
  4. METHOTREXATE. [Suspect]
     Active Substance: METHOTREXATE
     Indication: ACUTE MYELOID LEUKAEMIA
     Dosage: 0.01 G, 1X/DAY
     Route: 037
     Dates: start: 20181120, end: 20181120
  5. CYTOSAR [Suspect]
     Active Substance: CYTARABINE
     Indication: ACUTE MYELOID LEUKAEMIA
     Dosage: 0.04 G, 1X/DAY
     Route: 037
     Dates: start: 20181120, end: 20181120

REACTIONS (1)
  - Bone marrow failure [Recovering/Resolving]

NARRATIVE: CASE EVENT DATE: 20181205
